FAERS Safety Report 6233778-5 (Version None)
Quarter: 2009Q2

REPORT INFORMATION
  Report Type: 
  Country: None (occurrence: None)
  Receive Date: 20090612
  Receipt Date: 20090612
  Transmission Date: 20091009
  Serious: Yes (Other)
  Sender: FDA-Public Use
  Company Number: None

PATIENT
  Age: 50 Year
  Sex: Female

DRUGS (2)
  1. ZYPREXA [Suspect]
     Indication: AGITATED DEPRESSION
     Dosage: 10 MG BID PO
     Route: 048
     Dates: start: 20090311, end: 20090415
  2. TOPAMAX [Suspect]
     Indication: MIGRAINE
     Dosage: 100 MG BID PO
     Route: 048
     Dates: start: 20081101

REACTIONS (2)
  - HYPOAESTHESIA [None]
  - OEDEMA PERIPHERAL [None]
